FAERS Safety Report 5937472-7 (Version None)
Quarter: 2008Q4

REPORT INFORMATION
  Report Type: 
  Country: None (occurrence: None)
  Receive Date: 20081031
  Receipt Date: 20081030
  Transmission Date: 20090506
  Serious: Yes (Hospitalization)
  Sender: FDA-Public Use
  Company Number: B0543586A

PATIENT
  Sex: Female
  Weight: 92 kg

DRUGS (2)
  1. TOPOTECAN [Suspect]
     Dosage: 1.46MG CYCLIC
     Route: 042
     Dates: start: 20080908
  2. CARBOPLATIN [Suspect]
     Dosage: 744.65MG EVERY 3 WEEKS
     Route: 042
     Dates: start: 20080910

REACTIONS (2)
  - DYSPNOEA [None]
  - FLUSHING [None]
